FAERS Safety Report 25980467 (Version 1)
Quarter: 2025Q4

REPORT INFORMATION
  Report Type: Spontaneous
  Country: US (occurrence: None)
  Receive Date: 20251030
  Receipt Date: 20251030
  Transmission Date: 20260118
  Serious: No
  Sender: FDA-CTU
  Company Number: None

PATIENT
  Age: 69 Year
  Sex: Male

DRUGS (1)
  1. XDEMVY [Suspect]
     Active Substance: LOTILANER
     Dosage: 1 GTT DROP(S) TWICE A DAY OPHTHALMIC
     Route: 047

REACTIONS (4)
  - Periorbital swelling [None]
  - Eye irritation [None]
  - Hordeolum [None]
  - Therapy interrupted [None]

NARRATIVE: CASE EVENT DATE: 20251027
